FAERS Safety Report 9519213 (Version 1)
Quarter: 2013Q3

REPORT INFORMATION
  Report Type: Spontaneous
  Country: US (occurrence: None)
  Receive Date: 20130911
  Receipt Date: 20130911
  Transmission Date: 20140515
  Serious: Yes (Other)
  Sender: FDA-Public Use
  Company Number: None

PATIENT
  Age: 40 None
  Sex: Female

DRUGS (3)
  1. ESCITALOPRAM [Suspect]
     Indication: ANXIETY
     Route: 048
     Dates: start: 20120424
  2. BUPROPRION [Concomitant]
  3. MULTIVITAMIN [Concomitant]

REACTIONS (5)
  - Drug ineffective [None]
  - Panic attack [None]
  - Asthma [None]
  - Anxiety [None]
  - Product substitution issue [None]
